FAERS Safety Report 9530824 (Version 1)
Quarter: 2013Q2

REPORT INFORMATION
  Report Type: Spontaneous
  Country: US (occurrence: None)
  Receive Date: 20130418
  Receipt Date: 20130418
  Transmission Date: 20140414
  Serious: Yes (Other)
  Sender: FDA-Public Use
  Company Number: 0909USA03336

PATIENT
  Age: 27 Year
  Sex: Female
  Weight: 57.6 kg

DRUGS (1)
  1. SINGULAIR [Suspect]
     Indication: MULTIPLE ALLERGIES
     Route: 048
     Dates: start: 20080309, end: 20090205

REACTIONS (2)
  - Hypoaesthesia [None]
  - Paraesthesia [None]
